FAERS Safety Report 5487712-6 (Version None)
Quarter: 2007Q4

REPORT INFORMATION
  Report Type: 
  Country: None (occurrence: None)
  Receive Date: 20071015
  Receipt Date: 20071015
  Transmission Date: 20080405
  Serious: Yes (Other)
  Sender: FDA-Public Use
  Company Number: None

PATIENT
  Sex: Male
  Weight: 108.8633 kg

DRUGS (1)
  1. AMLODOP W/ BENAZ 5/10MG TEVA USA [Suspect]
     Indication: HYPERTENSION
     Dosage: 1 CAP-5/10MG- ONE PER DAY PO
     Route: 048
     Dates: start: 20070812, end: 20070830

REACTIONS (3)
  - BLOOD PRESSURE INCREASED [None]
  - PHARMACEUTICAL PRODUCT COMPLAINT [None]
  - RETINAL HAEMORRHAGE [None]
